FAERS Safety Report 24383542 (Version 8)
Quarter: 2025Q1

REPORT INFORMATION
  Report Type: Report from Study
  Country: US (occurrence: US)
  Receive Date: 20241001
  Receipt Date: 20250312
  Transmission Date: 20250409
  Serious: Yes (Other)
  Sender: TAKEDA
  Company Number: US-TAKEDA-2024TUS069816

PATIENT
  Sex: Female
  Weight: 62 kg

DRUGS (28)
  1. TEDUGLUTIDE [Suspect]
     Active Substance: TEDUGLUTIDE
     Indication: Short-bowel syndrome
     Dosage: 0.35 MILLILITER, QD
  2. TEDUGLUTIDE [Suspect]
     Active Substance: TEDUGLUTIDE
     Dosage: 0.35 MILLILITER, QD
  3. TEDUGLUTIDE [Suspect]
     Active Substance: TEDUGLUTIDE
     Dosage: 3.5 MILLIGRAM, QD
  4. TEDUGLUTIDE [Suspect]
     Active Substance: TEDUGLUTIDE
     Dosage: UNK UNK, QD
  5. TEDUGLUTIDE [Suspect]
     Active Substance: TEDUGLUTIDE
  6. TEDUGLUTIDE [Suspect]
     Active Substance: TEDUGLUTIDE
     Dosage: 3.5 MILLIGRAM, QD
  7. TEDUGLUTIDE [Suspect]
     Active Substance: TEDUGLUTIDE
     Dosage: 3.5 MILLIGRAM, QD
  8. CIPROFLOXACIN HYDROCHLORIDE [Concomitant]
     Active Substance: CIPROFLOXACIN HYDROCHLORIDE
  9. TIMOLOL MALEATE [Concomitant]
     Active Substance: TIMOLOL MALEATE
  10. BRIMONIDINE TARTRATE [Concomitant]
     Active Substance: BRIMONIDINE TARTRATE
  11. MODERNA COVID-19 VACCINE [Concomitant]
     Active Substance: ELASOMERAN
  12. ASPIRIN [Concomitant]
     Active Substance: ASPIRIN
  13. REPATHA [Concomitant]
     Active Substance: EVOLOCUMAB
  14. TRAZODONE HCL [Concomitant]
     Active Substance: TRAZODONE HYDROCHLORIDE
  15. RABEPRAZOLE SODIUM [Concomitant]
     Active Substance: RABEPRAZOLE SODIUM
  16. CHOLESTYRAMINE [Concomitant]
     Active Substance: CHOLESTYRAMINE
  17. CYANOCOBALAMIN [Concomitant]
     Active Substance: CYANOCOBALAMIN
  18. URSODIOL [Concomitant]
     Active Substance: URSODIOL
  19. OPIUM TINCTURE [Concomitant]
     Active Substance: MORPHINE
  20. DULOXETINE HYDROCHLORIDE [Concomitant]
     Active Substance: DULOXETINE HYDROCHLORIDE
  21. VITAMIN D [Concomitant]
     Active Substance: VITAMIN D NOS
  22. VITAMIN C [Concomitant]
     Active Substance: ASCORBIC ACID
  23. COENZYME Q10 [Concomitant]
     Active Substance: DIETARY SUPPLEMENT\UBIDECARENONE
  24. POTASSIUM CHLORIDE [Concomitant]
     Active Substance: POTASSIUM CHLORIDE
  25. LATANOPROST [Concomitant]
     Active Substance: LATANOPROST
  26. LEVOTHYROXINE [Concomitant]
     Active Substance: LEVOTHYROXINE
  27. HYDROXOCOBALAMIN [Concomitant]
     Active Substance: HYDROXOCOBALAMIN
  28. TPN [Concomitant]
     Active Substance: AMINO ACIDS\DEXTROSE\ELECTROLYTES NOS\SOYBEAN OIL
     Indication: Weight decreased

REACTIONS (11)
  - Blindness [Unknown]
  - Injury associated with device [Unknown]
  - Needle issue [Unknown]
  - Product dose omission issue [Unknown]
  - Product administration error [Unknown]
  - Product use issue [Unknown]
  - Injection site bruising [Unknown]
  - COVID-19 [Unknown]
  - Device difficult to use [Unknown]
  - Syringe issue [Unknown]
  - Injection site haemorrhage [Unknown]

NARRATIVE: CASE EVENT DATE: 20220101
